FAERS Safety Report 16342949 (Version 1)
Quarter: 2019Q2

REPORT INFORMATION
  Report Type: Spontaneous
  Country: CA (occurrence: CA)
  Receive Date: 20190522
  Receipt Date: 20190522
  Transmission Date: 20190711
  Serious: Yes (Disabling)
  Sender: FDA-Public Use
  Company Number: CA-TEVA-2019-CA-1051533

PATIENT
  Age: 73 Year
  Sex: Male
  Weight: 56 kg

DRUGS (4)
  1. SILDENAFIL CITRATE. [Suspect]
     Active Substance: SILDENAFIL CITRATE
     Indication: PULMONARY ARTERIAL HYPERTENSION
     Dosage: 60 MILLIGRAM DAILY;
     Route: 065
  2. OPSUMIT [Concomitant]
     Active Substance: MACITENTAN
  3. SPIRONOLACTONE. [Concomitant]
     Active Substance: SPIRONOLACTONE
  4. WARFARIN [Concomitant]
     Active Substance: WARFARIN

REACTIONS (1)
  - Deafness unilateral [Unknown]
